FAERS Safety Report 23874453 (Version 7)
Quarter: 2024Q3

REPORT INFORMATION
  Report Type: Spontaneous
  Country: US (occurrence: US)
  Receive Date: 20240520
  Receipt Date: 20240823
  Transmission Date: 20241016
  Serious: No
  Sender: PFIZER
  Company Number: US-PFIZER INC-202400130433

PATIENT
  Age: 73 Year
  Sex: Female
  Weight: 83.46 kg

DRUGS (19)
  1. PREMARIN [Suspect]
     Active Substance: ESTROGENS, CONJUGATED
     Indication: Menopausal symptoms
     Dosage: 0.625 ONCE
     Dates: start: 197704
  2. PREMARIN [Suspect]
     Active Substance: ESTROGENS, CONJUGATED
     Indication: Menopause
     Dosage: 0.625 MG, DAILY
     Route: 048
     Dates: start: 20240322, end: 202403
  3. PREMARIN [Suspect]
     Active Substance: ESTROGENS, CONJUGATED
     Dosage: 0.625 ONCE
     Dates: end: 202406
  4. ALBUTEROL [Concomitant]
     Active Substance: ALBUTEROL
     Indication: Dyspnoea
     Dosage: INHALE 2 PUFFS EVERY 4 HOURS (UP TO 6 TIMES A DAY) AS NEEDED FOR SHORTNESS OF BREATH
     Route: 055
     Dates: start: 20240322
  5. AZITHROMYCIN [Concomitant]
     Active Substance: AZITHROMYCIN
     Dosage: 2 DF, 1X/DAY
  6. BUDESONIDE\FORMOTEROL [Concomitant]
     Active Substance: BUDESONIDE\FORMOTEROL
     Dosage: INHALE 2 PUFFS BY INHALATION ROUTE 2 TIMES PER DAY IN THE MORNING AND EVENING
     Route: 055
     Dates: start: 20240322
  7. CYCLOBENZAPRINE [Concomitant]
     Active Substance: CYCLOBENZAPRINE
     Dosage: 5 MG, 1X/DAY (TAKE 1 TABLET (5 MG) BY ORAL ROUTE ONCE DAILY)
     Route: 048
  8. FLONASE SENSIMIST ALLERGY RELIEF [Concomitant]
     Active Substance: FLUTICASONE FUROATE
     Dosage: USE AS NEEDED
  9. FLUTICASONE PROPIONATE [Concomitant]
     Active Substance: FLUTICASONE PROPIONATE
     Dosage: SPRAY 1 SPRAY (50 MCG) IN EACH NOSTRIL ONCE DAILY
  10. HYDROCHLOROTHIAZIDE [Concomitant]
     Active Substance: HYDROCHLOROTHIAZIDE
     Indication: Hypertension
     Dosage: TAKE 1 TABLET (25 MG) BY ORAL ROUTE ONCE DAILY
     Route: 048
  11. MEDROL [Concomitant]
     Active Substance: METHYLPREDNISOLONE
     Dosage: TAKE IN MORNING. 6 TAB DAY 1; 5 TAB DAY 2; 4 TABS DAY 3, 3 TAB DAY 4; 2 TAB DAY 5; AND ONE TAB DAY 6
  12. MONTELUKAST [Concomitant]
     Active Substance: MONTELUKAST SODIUM
     Dosage: TAKE 1 TABLET (10 MG) BY ORAL ROUTE ONCE DAILY IN THE EVENING
     Route: 048
  13. NAPROXEN [Concomitant]
     Active Substance: NAPROXEN
     Indication: Pain
     Dosage: TAKE 1 TABLET (500 MG) BY ORAL ROUTE 2 TIMES PER DAY WITH FOOD, 12 HOURS APART AS NEEDED FOR PAIN
     Route: 048
  14. PANTOPRAZOLE [Concomitant]
     Active Substance: PANTOPRAZOLE
     Indication: Gastrooesophageal reflux disease
     Dosage: TAKE 1 TABLET (40 MG) BY ORAL ROUTE ONCE DAILY FOR GERD
     Route: 048
  15. PANTOPRAZOLE [Concomitant]
     Active Substance: PANTOPRAZOLE
     Indication: Ulcer
  16. SUCRALFATE [Concomitant]
     Active Substance: SUCRALFATE
     Indication: Abdominal pain upper
     Dosage: TAKE 1 TABLET BY MOUTH QID FOR STOMACH PAIN
     Route: 048
     Dates: start: 20240322
  17. VENTOLIN HFA [Concomitant]
     Active Substance: ALBUTEROL SULFATE
     Indication: Dyspnoea
     Dosage: INHALE 1-2 PUFFS (90 - 180 MCG) BY INHALATION ROUTE EVERY 4 HOURS AS NEEDED FOR SHORTNESS OF BREATH
     Route: 055
  18. VITAMIN D2 [Concomitant]
     Active Substance: ERGOCALCIFEROL
     Dosage: UNK UNK, AS NEEDED
  19. VITAMIN E [Concomitant]
     Active Substance: .ALPHA.-TOCOPHEROL
     Dosage: UNK, AS NEEDED

REACTIONS (2)
  - Asthenia [Not Recovered/Not Resolved]
  - Anxiety [Not Recovered/Not Resolved]

NARRATIVE: CASE EVENT DATE: 20240301
